FAERS Safety Report 21053740 (Version 1)
Quarter: 2022Q3

REPORT INFORMATION
  Report Type: Report from Study
  Country: SG (occurrence: SG)
  Receive Date: 20220707
  Receipt Date: 20220707
  Transmission Date: 20221027
  Serious: Yes (Hospitalization)
  Sender: FDA-Public Use
  Company Number: SG-NOVARTISPH-NVSC2020SG018939

PATIENT
  Age: 29 Year
  Sex: Female
  Weight: 66.2 kg

DRUGS (7)
  1. ASCIMINIB [Suspect]
     Active Substance: ASCIMINIB
     Indication: Chronic myeloid leukaemia
     Dosage: 160 MG, QD
     Route: 048
     Dates: start: 20191226, end: 20200108
  2. ASCIMINIB [Suspect]
     Active Substance: ASCIMINIB
     Indication: Acute lymphocytic leukaemia
     Dosage: 120 MG, QD
     Route: 048
     Dates: start: 20200206
  3. ASCIMINIB [Suspect]
     Active Substance: ASCIMINIB
     Dosage: 80 MG, QD
     Route: 048
     Dates: start: 202003
  4. DASATINIB [Suspect]
     Active Substance: DASATINIB
     Indication: Chronic myeloid leukaemia
     Dosage: 100 MG, QD
     Route: 048
     Dates: start: 20191226, end: 20200108
  5. DASATINIB [Suspect]
     Active Substance: DASATINIB
     Indication: Acute lymphocytic leukaemia
     Dosage: 70 MG, QD
     Route: 048
     Dates: start: 20200206
  6. DASATINIB [Suspect]
     Active Substance: DASATINIB
     Dosage: 70 MG, QD
     Route: 048
     Dates: start: 202003
  7. DASATINIB [Suspect]
     Active Substance: DASATINIB
     Dosage: 50 MG, QD
     Route: 048
     Dates: start: 202003

REACTIONS (1)
  - Pneumonia [Recovered/Resolved]

NARRATIVE: CASE EVENT DATE: 20200118
